FAERS Safety Report 16757970 (Version 1)
Quarter: 2019Q3

REPORT INFORMATION
  Report Type: Spontaneous
  Country: FR (occurrence: FR)
  Receive Date: 20190830
  Receipt Date: 20190830
  Transmission Date: 20191005
  Serious: Yes (Hospitalization)
  Sender: FDA-Public Use
  Company Number: FR-SA-2019SA239836

PATIENT
  Age: 85 Year
  Sex: Female
  Weight: 72 kg

DRUGS (6)
  1. ELIQUIS [Suspect]
     Active Substance: APIXABAN
     Indication: ARRHYTHMIA SUPRAVENTRICULAR
     Dosage: 5 MG, QD
     Route: 048
  2. NEBIVOLOL. [Suspect]
     Active Substance: NEBIVOLOL
     Indication: ARRHYTHMIA SUPRAVENTRICULAR
     Dosage: 5 MG, QD
     Route: 048
  3. IRBESARTAN. [Suspect]
     Active Substance: IRBESARTAN
     Indication: HYPERTENSION
     Dosage: 300 MG, QD
     Route: 048
  4. CORDARONE [Suspect]
     Active Substance: AMIODARONE HYDROCHLORIDE
     Indication: ARRHYTHMIA SUPRAVENTRICULAR
     Dosage: 200 MG, QD
     Route: 048
  5. FENOFIBRATE. [Suspect]
     Active Substance: FENOFIBRATE
     Indication: DYSLIPIDAEMIA
     Dosage: 200 MG, QD
     Route: 048
  6. HYDROCHLOROTHIAZIDE. [Suspect]
     Active Substance: HYDROCHLOROTHIAZIDE
     Indication: HYPERTENSION
     Dosage: 25 MG, QD
     Route: 048

REACTIONS (1)
  - Rectal haemorrhage [Recovered/Resolved]

NARRATIVE: CASE EVENT DATE: 20190708
